FAERS Safety Report 6073764-1 (Version None)
Quarter: 2009Q1

REPORT INFORMATION
  Report Type: 
  Country: None (occurrence: None)
  Receive Date: 20090209
  Receipt Date: 20090209
  Transmission Date: 20090719
  Serious: No
  Sender: FDA-Public Use
  Company Number: None

PATIENT
  Age: 11 Year
  Sex: Female

DRUGS (1)
  1. MERREM [Suspect]
     Indication: PNEUMONIA
     Dosage: INTRAVENOUS;500.0
     Route: 042

REACTIONS (2)
  - NEUTROPENIA [None]
  - PYREXIA [None]
